FAERS Safety Report 19430161 (Version 2)
Quarter: 2021Q2

REPORT INFORMATION
  Report Type: Spontaneous
  Country: US (occurrence: US)
  Receive Date: 20210617
  Receipt Date: 20210627
  Transmission Date: 20210717
  Serious: Yes (Death, Hospitalization)
  Sender: FDA-Public Use
  Company Number: US-UCBSA-2021022472

PATIENT
  Age: 27 Year
  Sex: Female
  Weight: 61.2 kg

DRUGS (3)
  1. CIMZIA [Suspect]
     Active Substance: CERTOLIZUMAB PEGOL
     Indication: AXIAL SPONDYLOARTHRITIS
     Dosage: LOADING DOSE
     Route: 058
     Dates: start: 202102, end: 2021
  2. MEDROL [METHYLPREDNISOLONE ACETATE] [Concomitant]
     Active Substance: METHYLPREDNISOLONE ACETATE
     Indication: AXIAL SPONDYLOARTHRITIS
     Dosage: UNK, 2X/DAY (BID)
     Route: 048
     Dates: start: 202103, end: 202105
  3. CIMZIA [Suspect]
     Active Substance: CERTOLIZUMAB PEGOL
     Dosage: 400 MILLIGRAM, EV 4 WEEKS
     Route: 058
     Dates: start: 2021, end: 202105

REACTIONS (2)
  - Death [Fatal]
  - Acute lymphocytic leukaemia [Recovered/Resolved with Sequelae]

NARRATIVE: CASE EVENT DATE: 20210501
